FAERS Safety Report 6268291-2 (Version None)
Quarter: 2009Q3

REPORT INFORMATION
  Report Type: 
  Country: None (occurrence: None)
  Receive Date: 20090714
  Receipt Date: 20090714
  Transmission Date: 20100115
  Serious: No
  Sender: FDA-Public Use
  Company Number: None

PATIENT
  Sex: Female
  Weight: 58.9676 kg

DRUGS (1)
  1. UREA CREAM -40%  UREA - HI-TECH PHARMACAL CO [Suspect]
     Indication: RASH
     Dosage: SMALL DOLLOP AS NEEDED TOP
     Route: 061
     Dates: start: 20090215

REACTIONS (1)
  - PRODUCT QUALITY ISSUE [None]
